FAERS Safety Report 4565220-4 (Version None)
Quarter: 2005Q1

REPORT INFORMATION
  Report Type: 
  Country: None (occurrence: None)
  Receive Date: 20050127
  Receipt Date: 20050127
  Transmission Date: 20050727
  Serious: Yes (Hospitalization)
  Sender: FDA-Public Use
  Company Number: None

PATIENT
  Age: 75 Year
  Sex: Male
  Weight: 86 kg

DRUGS (5)
  1. TERAZOSIN [Suspect]
     Indication: BENIGN PROSTATIC HYPERPLASIA
     Dosage: 10 MG, QHS, ORAL
     Route: 048
     Dates: end: 20040830
  2. ATENOLOL [Concomitant]
  3. TERAZOSIN HCL [Concomitant]
  4. BACITRACIN 500 /POLYMX [Concomitant]
  5. ALOH/MGOH/SIMETH XTRA STRENGTH [Concomitant]

REACTIONS (1)
  - SYNCOPE [None]
